FAERS Safety Report 7797912-8 (Version None)
Quarter: 2011Q4

REPORT INFORMATION
  Report Type: 
  Country: None (occurrence: None)
  Receive Date: 20111005
  Receipt Date: 20110923
  Transmission Date: 20120403
  Serious: Yes (Hospitalization)
  Sender: FDA-Public Use
  Company Number: US-BAYER-2011-091608

PATIENT
  Age: 27 Year
  Sex: Female

DRUGS (2)
  1. DROSPIRENONE AND ETHINYL ESTRADIOL [Suspect]
     Dosage: UNK
     Dates: start: 20020401, end: 20061201
  2. YASMIN [Suspect]
     Dosage: UNK
     Dates: start: 20020401, end: 20061201

REACTIONS (1)
  - CHOLECYSTECTOMY [None]
